FAERS Safety Report 18559638 (Version 2)
Quarter: 2023Q2

REPORT INFORMATION
  Report Type: Spontaneous
  Country: NL (occurrence: NL)
  Receive Date: 20201130
  Receipt Date: 20230511
  Transmission Date: 20230721
  Serious: Yes (Other)
  Sender: FDA-Public Use
  Company Number: NL-009507513-2011NLD015529

PATIENT
  Age: 55 Year
  Sex: Male

DRUGS (1)
  1. PEMBROLIZUMAB [Suspect]
     Active Substance: PEMBROLIZUMAB
     Indication: Lung adenocarcinoma stage IV
     Dosage: 200 MILLIGRAM, EVERY 3 WEEKS; C MIN OF 111.8-325.3 MCG/ML; C MAX: 315.9-599.9 MCG/ML (10 %-90 %); 7
     Route: 042

REACTIONS (1)
  - Neutropenia [Unknown]
